FAERS Safety Report 10430082 (Version 2)
Quarter: 2014Q3

REPORT INFORMATION
  Report Type: Spontaneous
  Country: US (occurrence: US)
  Receive Date: 20140904
  Receipt Date: 20140904
  Transmission Date: 20150326
  Serious: No
  Sender: FDA-Public Use
  Company Number: US-ASTRAZENECA-2012SE69901

PATIENT
  Age: 56 Year
  Sex: Female
  Weight: 102.1 kg

DRUGS (29)
  1. NEXIUM [Suspect]
     Active Substance: ESOMEPRAZOLE MAGNESIUM
     Indication: HELICOBACTER INFECTION
     Route: 048
     Dates: start: 2010, end: 20140424
  2. NEXIUM [Suspect]
     Active Substance: ESOMEPRAZOLE MAGNESIUM
     Indication: HELICOBACTER INFECTION
     Route: 048
     Dates: start: 20140818
  3. NORVASC [Concomitant]
     Active Substance: AMLODIPINE BESYLATE
     Indication: BLOOD PRESSURE ABNORMAL
     Route: 048
     Dates: start: 2012
  4. FLOVENT INHALER [Concomitant]
     Indication: ASTHMA
     Dosage: 2 PUFFS BID
     Route: 055
     Dates: start: 2006
  5. GARLIC AND PARSLEY GELCAP [Concomitant]
     Indication: BLOOD PRESSURE ABNORMAL
  6. NEXIUM [Suspect]
     Active Substance: ESOMEPRAZOLE MAGNESIUM
     Indication: HELICOBACTER INFECTION
     Route: 048
     Dates: start: 201407
  7. LIPITOR [Concomitant]
     Active Substance: ATORVASTATIN CALCIUM
     Indication: BLOOD CHOLESTEROL ABNORMAL
     Route: 048
     Dates: start: 2010
  8. HYDROCHLOROTHIAZIDE. [Concomitant]
     Active Substance: HYDROCHLOROTHIAZIDE
     Indication: BLOOD PRESSURE ABNORMAL
     Route: 048
     Dates: start: 2013
  9. HYDROCHLOROTHIAZIDE. [Concomitant]
     Active Substance: HYDROCHLOROTHIAZIDE
     Indication: DIURETIC THERAPY
     Route: 048
     Dates: start: 2013
  10. GARLIC AND PARSLEY GELCAP [Concomitant]
     Indication: IMMUNE SYSTEM DISORDER
  11. NEXIUM [Suspect]
     Active Substance: ESOMEPRAZOLE MAGNESIUM
     Indication: DIVERTICULITIS
     Route: 048
     Dates: start: 201407
  12. ATENOLOL. [Suspect]
     Active Substance: ATENOLOL
     Indication: BLOOD PRESSURE ABNORMAL
     Route: 048
     Dates: start: 201405
  13. NEXIUM [Suspect]
     Active Substance: ESOMEPRAZOLE MAGNESIUM
     Indication: DIVERTICULITIS
     Route: 048
     Dates: start: 2010, end: 20140424
  14. NEXIUM [Suspect]
     Active Substance: ESOMEPRAZOLE MAGNESIUM
     Indication: PAIN
     Route: 048
     Dates: start: 2010, end: 20140424
  15. VITAMIN C [Concomitant]
     Active Substance: ASCORBIC ACID
     Indication: MENOPAUSE
  16. PRILOSEC [Suspect]
     Active Substance: OMEPRAZOLE MAGNESIUM
     Indication: GASTROOESOPHAGEAL REFLUX DISEASE
     Dosage: DAILY
     Route: 048
     Dates: start: 2008, end: 2010
  17. NEXIUM [Suspect]
     Active Substance: ESOMEPRAZOLE MAGNESIUM
     Indication: DIVERTICULITIS
     Route: 048
     Dates: start: 20140818
  18. NASONEX [Concomitant]
     Active Substance: MOMETASONE FUROATE
     Indication: SINUS DISORDER
     Dosage: 2 SQUIRTS IN EACH NO DAILY
     Route: 045
     Dates: start: 2010
  19. METFORMIN [Concomitant]
     Active Substance: METFORMIN HYDROCHLORIDE
     Indication: DIABETES MELLITUS
     Route: 048
     Dates: start: 2012
  20. COD LIVER OIL PILL [Concomitant]
     Indication: IMMUNE SYSTEM DISORDER
  21. NEXIUM [Suspect]
     Active Substance: ESOMEPRAZOLE MAGNESIUM
     Indication: DYSPEPSIA
     Route: 048
     Dates: start: 2010, end: 20140424
  22. NEXIUM [Suspect]
     Active Substance: ESOMEPRAZOLE MAGNESIUM
     Indication: DYSPEPSIA
     Route: 048
     Dates: start: 201407
  23. NEXIUM [Suspect]
     Active Substance: ESOMEPRAZOLE MAGNESIUM
     Indication: DYSPEPSIA
     Route: 048
     Dates: start: 20140818
  24. NASONEX [Concomitant]
     Active Substance: MOMETASONE FUROATE
     Indication: HYPERSENSITIVITY
     Dosage: 2 SQUIRTS IN EACH NO DAILY
     Route: 045
     Dates: start: 2010
  25. PROVENTIL HFA [Concomitant]
     Active Substance: ALBUTEROL SULFATE
     Indication: ASTHMA
     Dosage: 2 PUFFS PRN
     Route: 055
     Dates: start: 2006
  26. NEXIUM [Suspect]
     Active Substance: ESOMEPRAZOLE MAGNESIUM
     Indication: GASTROOESOPHAGEAL REFLUX DISEASE
     Route: 048
     Dates: start: 2010, end: 20140424
  27. GARLIC AND PARSLEY GELCAP [Concomitant]
     Indication: ASTHMA
  28. ZANTAC [Concomitant]
     Active Substance: RANITIDINE HYDROCHLORIDE
     Indication: DYSPEPSIA
     Dates: start: 201406
  29. VITAMIN B12 [Concomitant]
     Active Substance: CYANOCOBALAMIN
     Indication: SUPPLEMENTATION THERAPY

REACTIONS (15)
  - Dyspepsia [Unknown]
  - Weight increased [Unknown]
  - Abdominal distension [Unknown]
  - Headache [Unknown]
  - Intentional product misuse [Unknown]
  - Nausea [Unknown]
  - Off label use [Unknown]
  - Drug ineffective [Unknown]
  - Feeling abnormal [Unknown]
  - Malaise [Unknown]
  - Diabetes mellitus [Unknown]
  - Helicobacter infection [Unknown]
  - Diarrhoea [Unknown]
  - Hypertension [Unknown]
  - Drug dose omission [Unknown]

NARRATIVE: CASE EVENT DATE: 2010
